FAERS Safety Report 20560524 (Version 1)
Quarter: 2022Q1

REPORT INFORMATION
  Report Type: Spontaneous
  Country: IT (occurrence: IT)
  Receive Date: 20220307
  Receipt Date: 20220307
  Transmission Date: 20220423
  Serious: Yes (Other)
  Sender: FDA-Public Use
  Company Number: IT-MYLANLABS-2022M1016645

PATIENT
  Age: 52 Year
  Sex: Female

DRUGS (1)
  1. GLATIRAMER ACETATE [Suspect]
     Active Substance: GLATIRAMER ACETATE
     Indication: Product used for unknown indication
     Dosage: ABOUT 1 MONTH

REACTIONS (3)
  - Lipodystrophy acquired [Not Recovered/Not Resolved]
  - Injection site mass [Unknown]
  - Injection site discolouration [Unknown]
